FAERS Safety Report 7363824-7 (Version None)
Quarter: 2011Q1

REPORT INFORMATION
  Report Type: 
  Country: None (occurrence: None)
  Receive Date: 20110321
  Receipt Date: 20110311
  Transmission Date: 20110831
  Serious: Yes (Death)
  Sender: FDA-Public Use
  Company Number: DE-ROCHE-748004

PATIENT
  Sex: Female
  Weight: 60 kg

DRUGS (2)
  1. ATACAND [Concomitant]
     Indication: HYPERTENSION
     Route: 048
     Dates: start: 20000101
  2. XELODA [Suspect]
     Dosage: AS MONOTHERAPY
     Route: 048
     Dates: start: 20100807, end: 20101129

REACTIONS (1)
  - BRAIN STEM INFARCTION [None]
